FAERS Safety Report 15147206 (Version 1)
Quarter: 2018Q3

REPORT INFORMATION
  Report Type: Spontaneous
  Country: AU (occurrence: AU)
  Receive Date: 20180716
  Receipt Date: 20180716
  Transmission Date: 20181010
  Serious: Yes (Other)
  Sender: FDA-Public Use
  Company Number: AU-SUN PHARMACEUTICAL INDUSTRIES LTD-2018R3-177521

PATIENT
  Age: 45 Year
  Sex: Female

DRUGS (1)
  1. IMATINIB RBX [Suspect]
     Active Substance: IMATINIB
     Indication: PRODUCT USED FOR UNKNOWN INDICATION
     Dosage: UNK
     Route: 065

REACTIONS (3)
  - Abdominal pain upper [Unknown]
  - Suicidal ideation [Unknown]
  - Vomiting [Unknown]

NARRATIVE: CASE EVENT DATE: 201806
